FAERS Safety Report 6696929-4 (Version None)
Quarter: 2010Q2

REPORT INFORMATION
  Report Type: 
  Country: None (occurrence: None)
  Receive Date: 20100426
  Receipt Date: 20100414
  Transmission Date: 20101027
  Serious: Yes (Other)
  Sender: FDA-Public Use
  Company Number: PHHY2010GB12767

PATIENT
  Sex: Female

DRUGS (14)
  1. CLOZARIL [Suspect]
     Indication: SCHIZOPHRENIA
     Dosage: UNK
     Dates: start: 20090305
  2. CLOZARIL [Interacting]
     Dosage: 800 MG, UNK
     Route: 048
     Dates: start: 20100406
  3. CLINDAMYCIN [Interacting]
     Indication: SUBCUTANEOUS ABSCESS
     Dosage: 600 MG, UNK
     Route: 048
     Dates: start: 20100204
  4. RIFAMPICIN [Interacting]
     Indication: SUBCUTANEOUS ABSCESS
     Dosage: 600 MG, UNK
     Route: 048
     Dates: start: 20100204
  5. HIBISCRUB [Concomitant]
     Indication: SUBCUTANEOUS ABSCESS
     Dosage: UNK
     Dates: start: 20100204
  6. TRIHEXYPHENIDYL HCL [Concomitant]
     Indication: EXTRAPYRAMIDAL DISORDER
     Dosage: 20 MG, UNK
     Route: 048
     Dates: start: 20090801
  7. MIRTAZAPINE [Concomitant]
     Indication: DEPRESSION
     Dosage: 30 MG, UNK
     Route: 048
     Dates: start: 20081201
  8. PEPPERMINT [Concomitant]
     Indication: IRRITABLE BOWEL SYNDROME
     Dosage: 3 CAPSULES
     Route: 048
  9. DICYCLOVERINE [Concomitant]
     Indication: ABDOMINAL PAIN
     Dosage: 30 MG, UNK
  10. VITAMIN B1 TAB [Concomitant]
     Indication: ANAEMIA
     Route: 048
  11. RAMIPRIL [Concomitant]
     Indication: HYPERTENSION
     Dosage: 10 MG, UNK
     Route: 048
  12. ORLISTAT [Concomitant]
     Indication: OBESITY
     Dosage: 360 MG, UNK
     Route: 048
  13. LANSOPRAZOLE [Concomitant]
     Indication: DYSPEPSIA
     Dosage: 30 MG, UNK
     Route: 048
  14. QVAR 40 [Concomitant]
     Indication: ASTHMA

REACTIONS (4)
  - DERMATITIS [None]
  - DRUG INTERACTION [None]
  - SUBCUTANEOUS ABSCESS [None]
  - WHITE BLOOD CELL COUNT DECREASED [None]
